FAERS Safety Report 18979079 (Version 1)
Quarter: 2021Q1

REPORT INFORMATION
  Report Type: Spontaneous
  Country: NL (occurrence: NL)
  Receive Date: 20210308
  Receipt Date: 20210308
  Transmission Date: 20210420
  Serious: Yes (Other)
  Sender: FDA-Public Use
  Company Number: NL-BEH-2021129216

PATIENT

DRUGS (2)
  1. RHOPHYLAC [Suspect]
     Active Substance: HUMAN RHO(D) IMMUNE GLOBULIN
     Indication: PRODUCT USED FOR UNKNOWN INDICATION
     Dosage: 1000 INTERNATIONAL UNIT, TOT
     Route: 064
     Dates: start: 20210216, end: 20210216
  2. RHOPHYLAC [Suspect]
     Active Substance: HUMAN RHO(D) IMMUNE GLOBULIN
     Indication: PRODUCT USED FOR UNKNOWN INDICATION
     Dosage: 1000 INTERNATIONAL UNIT, TOT
     Route: 064
     Dates: start: 20210216, end: 20210216

REACTIONS (4)
  - Foetal exposure during pregnancy [Unknown]
  - Expired product administered [Unknown]
  - No adverse event [Unknown]
  - Foetal growth restriction [Unknown]
